FAERS Safety Report 15463392 (Version 2)
Quarter: 2018Q4

REPORT INFORMATION
  Report Type: Spontaneous
  Country: US (occurrence: US)
  Receive Date: 20181004
  Receipt Date: 20181022
  Transmission Date: 20190204
  Serious: No
  Sender: FDA-Public Use
  Company Number: US-VERTEX PHARMACEUTICALS-2018-007014

PATIENT
  Age: 23 Year
  Sex: Female

DRUGS (37)
  1. VITAMIN E                          /00110501/ [Concomitant]
     Active Substance: TOCOPHEROL
  2. ZALEPLON. [Concomitant]
     Active Substance: ZALEPLON
  3. TRIAMCINOLONE [Concomitant]
     Active Substance: TRIAMCINOLONE
  4. IBUPROFEN. [Concomitant]
     Active Substance: IBUPROFEN
  5. FLUTICASONE. [Concomitant]
     Active Substance: FLUTICASONE
  6. GAVILYTE G [Concomitant]
     Active Substance: POLYETHYLENE GLYCOL 3350\POTASSIUM CHLORIDE\SODIUM BICARBONATE\SODIUM CHLORIDE\SODIUM SULFATE ANHYDROUS
  7. URSODIOL. [Concomitant]
     Active Substance: URSODIOL
  8. ADVIL (MEFENAMIC ACID) [Concomitant]
     Active Substance: MEFENAMIC ACID
  9. PROCHLORPERAZ [Concomitant]
     Active Substance: PROCHLORPERAZINE MALEATE
  10. CALCIUM [Concomitant]
     Active Substance: CALCIUM
  11. SALINE                             /00075401/ [Concomitant]
     Active Substance: SODIUM CHLORIDE
  12. BUTALBITAL APAP CAFFEINE [Concomitant]
  13. CLONAZEPAM. [Concomitant]
     Active Substance: CLONAZEPAM
  14. VITAMIN D3 [Concomitant]
     Active Substance: CHOLECALCIFEROL
  15. TRAZODONE [Concomitant]
     Active Substance: TRAZODONE HYDROCHLORIDE
  16. LORAZEPAM. [Concomitant]
     Active Substance: LORAZEPAM
  17. OLANZAPINE. [Concomitant]
     Active Substance: OLANZAPINE
  18. SYMDEKO [Suspect]
     Active Substance: IVACAFTOR\TEZACAFTOR
     Indication: CYSTIC FIBROSIS
     Dosage: 100MG TEZACAFTOR/150MG IVACAFTOR AM; 150MG IVACAFTOR PM
     Route: 048
     Dates: start: 20180615
  19. LEVONORGESTREL. [Concomitant]
     Active Substance: LEVONORGESTREL
  20. BUDESONIDE. [Concomitant]
     Active Substance: BUDESONIDE
  21. CYCLOBENZAPRIN [Concomitant]
     Active Substance: CYCLOBENZAPRINE
  22. LEVOFLOXACIN. [Concomitant]
     Active Substance: LEVOFLOXACIN
  23. HYDROMORPHON AL [Concomitant]
     Active Substance: HYDROMORPHONE HYDROCHLORIDE
  24. METOCLOPRAM [Concomitant]
     Active Substance: METOCLOPRAMIDE
  25. AVIANE [Concomitant]
     Active Substance: ETHINYL ESTRADIOL\LEVONORGESTREL
  26. FISH OIL [Concomitant]
     Active Substance: FISH OIL
  27. AQUADEKS                           /07679501/ [Concomitant]
     Active Substance: MINERALS\VITAMINS
  28. PULMOZYME [Concomitant]
     Active Substance: DORNASE ALFA
  29. PRAZOSIN HCL [Concomitant]
     Active Substance: PRAZOSIN HYDROCHLORIDE
  30. TOBI [Concomitant]
     Active Substance: TOBRAMYCIN
     Route: 055
  31. ZENPEP [Concomitant]
     Active Substance: PANCRELIPASE AMYLASE\PANCRELIPASE LIPASE\PANCRELIPASE PROTEASE
  32. MELATONIN [Concomitant]
     Active Substance: MELATONIN
  33. ONDASETRON                         /00955301/ [Concomitant]
     Active Substance: ONDANSETRON
  34. APAP CODEINE [Concomitant]
  35. GUANFACINE. [Concomitant]
     Active Substance: GUANFACINE
  36. MIRTAZAPINE. [Concomitant]
     Active Substance: MIRTAZAPINE
  37. SMZ-TMP [Concomitant]
     Active Substance: SULFAMETHOXAZOLE\TRIMETHOPRIM

REACTIONS (2)
  - Central venous catheterisation [Not Recovered/Not Resolved]
  - Hypersensitivity [Unknown]

NARRATIVE: CASE EVENT DATE: 20180914
